FAERS Safety Report 16085305 (Version 2)
Quarter: 2019Q2

REPORT INFORMATION
  Report Type: Spontaneous
  Country: IT (occurrence: IT)
  Receive Date: 20190318
  Receipt Date: 20190401
  Transmission Date: 20190711
  Serious: Yes (Hospitalization, Other)
  Sender: FDA-Public Use
  Company Number: PHHY2019IT043646

PATIENT
  Age: 69 Year
  Sex: Male

DRUGS (16)
  1. VALSARTAN. [Suspect]
     Active Substance: VALSARTAN
     Indication: ATRIAL FIBRILLATION
  2. DASABUVIR [Interacting]
     Active Substance: DASABUVIR
     Indication: HEPATITIS C
  3. OMBITASVIR [Interacting]
     Active Substance: OMBITASVIR
     Indication: HEPATITIS C
  4. HYDROCHLOROTHIAZIDE. [Concomitant]
     Active Substance: HYDROCHLOROTHIAZIDE
     Indication: ATRIAL FIBRILLATION
     Route: 065
  5. FLECAINIDE [Interacting]
     Active Substance: FLECAINIDE
     Indication: ATRIAL FIBRILLATION
     Route: 065
  6. RIBAVIRIN. [Interacting]
     Active Substance: RIBAVIRIN
     Indication: HEPATITIS C VIRUS TEST POSITIVE
     Dosage: UNK
     Route: 065
     Dates: start: 201504, end: 201507
  7. RITONAVIR. [Interacting]
     Active Substance: RITONAVIR
     Indication: HEPATITIS C
  8. DASABUVIR [Interacting]
     Active Substance: DASABUVIR
     Indication: HEPATITIS C VIRUS TEST POSITIVE
     Route: 065
  9. RIBAVIRIN. [Interacting]
     Active Substance: RIBAVIRIN
     Indication: HEPATITIS C
     Dosage: 800 MG, QID (ON ADJUSTED DOSE)
     Route: 065
     Dates: start: 201507
  10. HYDROCHLOROTHIAZIDE. [Concomitant]
     Active Substance: HYDROCHLOROTHIAZIDE
     Indication: ATRIAL FIBRILLATION
  11. RITONAVIR. [Interacting]
     Active Substance: RITONAVIR
     Indication: HEPATITIS C VIRUS TEST POSITIVE
     Route: 065
  12. PARITAPREVIR [Interacting]
     Active Substance: PARITAPREVIR
     Indication: HEPATITIS C
  13. OMBITASVIR [Interacting]
     Active Substance: OMBITASVIR
     Indication: HEPATITIS C VIRUS TEST POSITIVE
     Route: 065
  14. ACETYLSALICYLIC ACID [Concomitant]
     Active Substance: ASPIRIN
     Indication: ATRIAL FIBRILLATION
     Route: 065
  15. VALSARTAN. [Suspect]
     Active Substance: VALSARTAN
     Indication: ATRIAL FIBRILLATION
     Route: 065
  16. PARITAPREVIR [Interacting]
     Active Substance: PARITAPREVIR
     Indication: HEPATITIS C VIRUS TEST POSITIVE
     Route: 065

REACTIONS (4)
  - Bradycardia [Not Recovered/Not Resolved]
  - Anaemia [Unknown]
  - Syncope [Unknown]
  - Drug interaction [Unknown]

NARRATIVE: CASE EVENT DATE: 201507
